FAERS Safety Report 24149722 (Version 1)
Quarter: 2024Q3

REPORT INFORMATION
  Report Type: Spontaneous
  Country: ES (occurrence: ES)
  Receive Date: 20240730
  Receipt Date: 20240730
  Transmission Date: 20241016
  Serious: Yes (Other)
  Sender: NOVO NORDISK
  Company Number: None

PATIENT
  Age: 75 Year
  Sex: Female

DRUGS (12)
  1. BIMATOPROST\TIMOLOL [Concomitant]
     Active Substance: BIMATOPROST\TIMOLOL
     Indication: Glaucoma
     Dosage: 1 GTS DE
     Dates: start: 20220323
  2. RYBELSUS [Suspect]
     Active Substance: SEMAGLUTIDE
     Indication: Diabetic complication
  3. RYBELSUS [Suspect]
     Active Substance: SEMAGLUTIDE
     Indication: Diabetes mellitus
     Dosage: 14 MG, QD (AM)
     Route: 048
     Dates: start: 20231128, end: 20240628
  4. PARACETAMOL PENSA [Concomitant]
     Indication: Pain
     Dosage: 1.0 G DECOCE
     Route: 048
     Dates: start: 20210209
  5. CALCIFEDIOL [Concomitant]
     Active Substance: CALCIFEDIOL
     Indication: Vitamin D decreased
     Dosage: 0.266 MG C/30 DIAS
     Route: 048
     Dates: start: 20220824
  6. ATORVASTATIN CALCIUM [Concomitant]
     Active Substance: ATORVASTATIN CALCIUM
     Indication: Diabetes mellitus
     Dosage: 40.0 MG CE
     Route: 048
     Dates: start: 20101120
  7. NOVORAPID [Concomitant]
     Active Substance: INSULIN ASPART
     Indication: Diabetes mellitus
     Dosage: 12.0 UI A-DECOCE
     Route: 058
     Dates: start: 20110324
  8. JARDIANCE [Concomitant]
     Active Substance: EMPAGLIFLOZIN
     Indication: Diabetes mellitus
     Dosage: 10MG C/24 H
     Route: 048
     Dates: start: 20180323
  9. LANTUS SOLOSTAR [Concomitant]
     Active Substance: INSULIN GLARGINE
     Indication: Diabetic complication
     Dosage: 27.0 UI C/24 H (18)
     Route: 058
     Dates: start: 20110407
  10. MIRABEGRON [Concomitant]
     Active Substance: MIRABEGRON
     Indication: Urinary incontinence
     Dosage: 50MG C/24 H
     Route: 048
     Dates: start: 20240516
  11. FLUOXETINE HYDROCHLORIDE [Concomitant]
     Active Substance: FLUOXETINE HYDROCHLORIDE
     Indication: Bulimia nervosa
     Dosage: 20.0 MG DECO
     Route: 048
     Dates: start: 20201023
  12. PARIZAC [OMEPRAZOLE] [Concomitant]
     Indication: Dyspepsia
     Dosage: 20MG A-DE

REACTIONS (1)
  - Depression [Recovering/Resolving]

NARRATIVE: CASE EVENT DATE: 20240614
